FAERS Safety Report 22379421 (Version 1)
Quarter: 2023Q2

REPORT INFORMATION
  Report Type: Spontaneous
  Country: FR (occurrence: FR)
  Receive Date: 20230529
  Receipt Date: 20230529
  Transmission Date: 20230721
  Serious: Yes (Life-Threatening)
  Sender: FDA-Public Use
  Company Number: None

PATIENT
  Age: 76 Year
  Sex: Female
  Weight: 78 kg

DRUGS (2)
  1. LINEZOLID [Suspect]
     Active Substance: LINEZOLID
     Indication: Superinfection bacterial
     Dosage: 600 MG, 2X/DAY
     Route: 048
     Dates: start: 20230419, end: 20230510
  2. CEFOTAXIME SODIUM [Concomitant]
     Active Substance: CEFOTAXIME SODIUM
     Indication: Superinfection bacterial
     Dosage: 1 G, 3X/DAY (FREQ:8 H)
     Route: 042
     Dates: start: 20230419, end: 20230510

REACTIONS (2)
  - Lactic acidosis [Recovered/Resolved]
  - Bicytopenia [Not Recovered/Not Resolved]

NARRATIVE: CASE EVENT DATE: 20230510
